FAERS Safety Report 16956735 (Version 1)
Quarter: 2019Q4

REPORT INFORMATION
  Report Type: Spontaneous
  Country: US (occurrence: US)
  Receive Date: 20191023
  Receipt Date: 20191023
  Transmission Date: 20200122
  Serious: No
  Sender: FDA-Public Use
  Company Number: None

PATIENT
  Age: 51 Year
  Sex: Male
  Weight: 97.2 kg

DRUGS (8)
  1. ALBUTEROL. [Concomitant]
     Active Substance: ALBUTEROL
  2. OTEZLA [Concomitant]
     Active Substance: APREMILAST
  3. MONTELUKAST [Concomitant]
     Active Substance: MONTELUKAST SODIUM
  4. FISH OIL [Concomitant]
     Active Substance: FISH OIL
  5. COMBIGAN [Suspect]
     Active Substance: BRIMONIDINE TARTRATE\TIMOLOL MALEATE
     Indication: GLAUCOMA
     Dosage: ?          QUANTITY:5 MILLILITER;?
     Route: 047
     Dates: start: 20190926, end: 20191023
  6. LATANOPROST. [Suspect]
     Active Substance: LATANOPROST
  7. NIACIN. [Concomitant]
     Active Substance: NIACIN
  8. CENTRUM SILVER [Concomitant]
     Active Substance: MINERALS\VITAMINS

REACTIONS (3)
  - Product formulation issue [None]
  - Underdose [None]
  - Glaucoma [None]

NARRATIVE: CASE EVENT DATE: 20191001
